FAERS Safety Report 9088640 (Version 2)
Quarter: 2013Q2

REPORT INFORMATION
  Report Type: Spontaneous
  Country: GB (occurrence: GB)
  Receive Date: 20130201
  Receipt Date: 20130527
  Transmission Date: 20140414
  Serious: Yes (Other)
  Sender: FDA-Public Use
  Company Number: GB-009507513-1301GBR011322

PATIENT
  Sex: Male

DRUGS (4)
  1. COZAAR [Suspect]
     Indication: AORTIC ANEURYSM
     Dosage: 100 MG, QD
     Route: 048
  2. ASPIRIN [Suspect]
     Indication: PRODUCT USED FOR UNKNOWN INDICATION
     Route: 065
  3. BENDROFLUMETHIAZIDE [Suspect]
     Indication: PRODUCT USED FOR UNKNOWN INDICATION
     Dosage: 1.25 MG, UNK
     Route: 065
  4. BISOPROLOL [Suspect]
     Indication: HEART RATE IRREGULAR
     Dosage: 2.5 MG, QD
     Route: 065

REACTIONS (7)
  - Aneurysm [Unknown]
  - Dyspnoea [Unknown]
  - Blood pressure diastolic increased [Unknown]
  - Drug interaction [Unknown]
  - Cardiac failure [Unknown]
  - Abdominal distension [Unknown]
  - Transient ischaemic attack [Unknown]
